FAERS Safety Report 20436295 (Version 1)
Quarter: 2022Q1

REPORT INFORMATION
  Report Type: Spontaneous
  Country: PT (occurrence: PT)
  Receive Date: 20220207
  Receipt Date: 20220207
  Transmission Date: 20220423
  Serious: Yes (Other)
  Sender: FDA-Public Use
  Company Number: None

PATIENT
  Age: 70 Year
  Sex: Female

DRUGS (2)
  1. ALLOPURINOL [Suspect]
     Active Substance: ALLOPURINOL
     Indication: Product used for unknown indication
     Dosage: UNK UNK, Q3W
  2. PREDNISOLONE [Suspect]
     Active Substance: PREDNISOLONE
     Indication: Product used for unknown indication
     Dosage: 60 MILLIGRAM, QD (60MG/DAY)

REACTIONS (12)
  - Drug reaction with eosinophilia and systemic symptoms [Recovering/Resolving]
  - Skin lesion [Unknown]
  - Acute kidney injury [Unknown]
  - Colitis [Unknown]
  - Abdominal pain [Unknown]
  - Eosinophilia [Unknown]
  - End stage renal disease [Unknown]
  - Leukocytosis [Unknown]
  - Diarrhoea [Unknown]
  - Cholestasis [Unknown]
  - Toxic skin eruption [Unknown]
  - Rash [Unknown]
